FAERS Safety Report 7587532-2 (Version None)
Quarter: 2011Q3

REPORT INFORMATION
  Report Type: 
  Country: None (occurrence: None)
  Receive Date: 20110704
  Receipt Date: 20110620
  Transmission Date: 20111222
  Serious: Yes (Hospitalization)
  Sender: FDA-Public Use
  Company Number: PHHY2011IT55930

PATIENT
  Sex: Male
  Weight: 2.9 kg

DRUGS (9)
  1. OCTREOTIDE ACETATE [Suspect]
     Dosage: 5 UG/KG, HOUR
  2. OCTREOTIDE ACETATE [Suspect]
     Dosage: 4 UG/KG, HOUR
  3. TPN [Concomitant]
  4. OCTREOTIDE ACETATE [Suspect]
     Dosage: 3 UG/KG, HOUR
  5. OCTREOTIDE ACETATE [Suspect]
     Dosage: 7 UG/KG, HOUR
  6. OCTREOTIDE ACETATE [Suspect]
     Dosage: 6 UG/KG, HOUR
  7. OCTREOTIDE ACETATE [Suspect]
     Dosage: 2 UG/KG, HOUR
  8. OCTREOTIDE ACETATE [Suspect]
     Indication: CHYLOTHORAX
     Dosage: 1 UG/KG, PER HOUR
  9. OCTREOTIDE ACETATE [Suspect]
     Dosage: 22 UG, TID
     Route: 058

REACTIONS (7)
  - ANAEMIA [None]
  - HYPOALBUMINAEMIA [None]
  - IMMUNOGLOBULINS DECREASED [None]
  - HYPONATRAEMIA [None]
  - THROMBOCYTOSIS [None]
  - BLOOD INSULIN DECREASED [None]
  - HYPOKALAEMIA [None]
